FAERS Safety Report 26095679 (Version 3)
Quarter: 2025Q4

REPORT INFORMATION
  Report Type: Report from Study
  Country: AR (occurrence: AR)
  Receive Date: 20251127
  Receipt Date: 20251223
  Transmission Date: 20260118
  Serious: Yes (Hospitalization)
  Sender: NOVARTIS
  Company Number: AR-002147023-NVSC2025AR155483

PATIENT
  Sex: Male

DRUGS (3)
  1. PLUVICTO [Suspect]
     Active Substance: LUTETIUM LU-177 VIPIVOTIDE TETRAXETAN
     Indication: Prostate cancer
     Dosage: UNK
     Route: 065
     Dates: start: 20250821
  2. PLUVICTO [Suspect]
     Active Substance: LUTETIUM LU-177 VIPIVOTIDE TETRAXETAN
     Indication: Hormone-refractory prostate cancer
     Dosage: UNK
     Route: 065
     Dates: start: 20251106
  3. TELMISARTAN [Concomitant]
     Active Substance: TELMISARTAN
     Indication: Product used for unknown indication
     Dosage: 40 MG, QD
     Route: 065

REACTIONS (22)
  - Anaemia [Unknown]
  - Haematuria [Unknown]
  - Red blood cell count decreased [Unknown]
  - Haemorrhage [Unknown]
  - Urinary bladder haemorrhage [Unknown]
  - Blood urea increased [Unknown]
  - Blood creatinine increased [Unknown]
  - Prostatic specific antigen decreased [Unknown]
  - Haematocrit decreased [Unknown]
  - Dry mouth [Unknown]
  - Chromaturia [Unknown]
  - Diarrhoea [Unknown]
  - Fatigue [Unknown]
  - Pyrexia [Unknown]
  - Urethral pain [Unknown]
  - Haemoglobin abnormal [Unknown]
  - Red blood cell count abnormal [Unknown]
  - Vomiting [Unknown]
  - Decreased appetite [Unknown]
  - Food aversion [Unknown]
  - Prostatic specific antigen increased [Recovering/Resolving]
  - Investigation abnormal [Unknown]

NARRATIVE: CASE EVENT DATE: 20250101
